FAERS Safety Report 21489410 (Version 1)
Quarter: 2022Q4

REPORT INFORMATION
  Report Type: Spontaneous
  Country: US (occurrence: US)
  Receive Date: 20221021
  Receipt Date: 20221021
  Transmission Date: 20230113
  Serious: No
  Sender: FDA-Public Use
  Company Number: US-CELLTRION INC.-2022US004237

PATIENT

DRUGS (3)
  1. INFLECTRA [Suspect]
     Active Substance: INFLIXIMAB-DYYB
     Indication: Rheumatoid arthritis
     Dosage: ((LD) DIRECTIONS: INJECT 500 MG OF INFLECTRA FREQUENCY: DAY 0, 14, 42 QUANTITY: 15 REFILLS 0; (M) DI
     Route: 065
  2. INFLECTRA [Suspect]
     Active Substance: INFLIXIMAB-DYYB
     Dosage: DIRECTIONS: UNKNOWN UNKNOWN; INJECTION; REGIMEN #2 INJECT 500 MG FREQUENCY: UNKNOWN EVERY (BLANK) QU
     Route: 065
  3. INFLECTRA [Suspect]
     Active Substance: INFLIXIMAB-DYYB
     Dosage: DIRECTIONS: 500 MG IV DAY 42 THEN EVERY 6 WEEKS QUANTITY: 5 REFILLS: 6
     Route: 042

REACTIONS (1)
  - Off label use [Unknown]
